FAERS Safety Report 7460778-X (Version None)
Quarter: 2011Q2

REPORT INFORMATION
  Report Type: 
  Country: None (occurrence: None)
  Receive Date: 20110505
  Receipt Date: 20110427
  Transmission Date: 20111010
  Serious: Yes (Other)
  Sender: FDA-Public Use
  Company Number: PHEH2009US11067

PATIENT
  Sex: Female

DRUGS (25)
  1. ESTRADERM [Suspect]
     Indication: HORMONE THERAPY
     Dosage: UNK
     Route: 062
     Dates: start: 19920422, end: 19971111
  2. PROVERA [Suspect]
     Dosage: 2.5 MG, UNK
     Dates: start: 19951030, end: 19971111
  3. PREMPRO [Suspect]
     Indication: HORMONE THERAPY
     Dosage: UNK
     Dates: start: 19971111, end: 20020601
  4. OSTEO BI-FLEX [Concomitant]
  5. ARTHROTEC [Concomitant]
  6. LESCOL [Concomitant]
  7. PROZAC [Concomitant]
  8. COENZYME Q10 [Concomitant]
  9. LEXAPRO [Concomitant]
  10. MULTIPLE VITAMINS [Concomitant]
  11. PROVERA [Suspect]
     Indication: HORMONE REPLACEMENT THERAPY
     Dosage: 10 MG, UNK
     Dates: start: 19920422, end: 19951001
  12. BONIVA [Concomitant]
  13. PREMARIN [Suspect]
     Indication: HORMONE THERAPY
     Dosage: 0.625 MG, UNK
     Dates: start: 19821213, end: 19920401
  14. ARIMIDEX [Suspect]
  15. ASPIRIN [Concomitant]
  16. ALLEGRA [Concomitant]
  17. VITAMIN C [Concomitant]
  18. CHONDROITIN SULFATE [Concomitant]
  19. FLAXSEED OIL [Concomitant]
  20. ALTACE [Concomitant]
  21. VITAMIN E [Concomitant]
  22. LOVAZA [Concomitant]
  23. CALCIUM WITH VITAMIN D [Concomitant]
  24. CENTRUM SILVER [Concomitant]
  25. OSCAL 500-D [Concomitant]

REACTIONS (27)
  - PAIN [None]
  - ANXIETY [None]
  - TONGUE COATED [None]
  - INSOMNIA [None]
  - PARAESTHESIA [None]
  - OEDEMA [None]
  - TREMOR [None]
  - FEELING COLD [None]
  - MUSCULOSKELETAL PAIN [None]
  - HOT FLUSH [None]
  - OSTEOPENIA [None]
  - ARTHRALGIA [None]
  - STRESS [None]
  - DEPRESSION [None]
  - HEARING IMPAIRED [None]
  - PROGESTERONE RECEPTOR ASSAY POSITIVE [None]
  - DEFORMITY [None]
  - TINNITUS [None]
  - OESTROGEN RECEPTOR ASSAY POSITIVE [None]
  - BREAST CANCER IN SITU [None]
  - PSYCHIATRIC SYMPTOM [None]
  - ERYTHEMA [None]
  - QUALITY OF LIFE DECREASED [None]
  - FATIGUE [None]
  - MUSCULOSKELETAL DISCOMFORT [None]
  - BACK PAIN [None]
  - PRURITUS [None]
